FAERS Safety Report 11218005 (Version 2)
Quarter: 2015Q3

REPORT INFORMATION
  Report Type: Spontaneous
  Country: JP (occurrence: JP)
  Receive Date: 20150625
  Receipt Date: 20150706
  Transmission Date: 20151125
  Serious: No
  Sender: FDA-Public Use
  Company Number: JP-BAYER-2015-357007

PATIENT
  Age: 42 Year
  Sex: Female
  Weight: 70 kg

DRUGS (4)
  1. YAZ [Suspect]
     Active Substance: DROSPIRENONE\ETHINYL ESTRADIOL
     Indication: DYSMENORRHOEA
     Dosage: 1 DF, QD
     Route: 048
     Dates: start: 20150529, end: 20150610
  2. LANDSEN [Concomitant]
     Active Substance: CLONAZEPAM
     Indication: INSOMNIA
     Dosage: DAILY DOSE 1 MG
     Route: 048
     Dates: start: 2012
  3. LANDSEN [Concomitant]
     Active Substance: CLONAZEPAM
     Indication: ANXIETY
  4. TOUKISYAKUYAKUSAN [Concomitant]
     Indication: MENOPAUSAL SYMPTOMS
     Dosage: DAILY DOSE 7.5 G
     Route: 048
     Dates: start: 201502

REACTIONS (4)
  - Malaise [Recovered/Resolved]
  - Pain in extremity [Recovered/Resolved]
  - Visual impairment [Recovered/Resolved]
  - Asthenia [Recovered/Resolved]

NARRATIVE: CASE EVENT DATE: 20150531
